FAERS Safety Report 6480051-6 (Version None)
Quarter: 2009Q4

REPORT INFORMATION
  Report Type: 
  Country: None (occurrence: None)
  Receive Date: 20091208
  Receipt Date: 20091202
  Transmission Date: 20100525
  Serious: Yes (Other)
  Sender: FDA-Public Use
  Company Number: US-B.I. PHARMACEUTICALS,INC./RIDGEFIELD-2009-BP-14027PF

PATIENT
  Sex: Female
  Weight: 77.11 kg

DRUGS (10)
  1. SPIRIVA [Suspect]
     Indication: ASTHMA
     Route: 055
     Dates: start: 20080101
  2. ALDACTONE [Suspect]
     Indication: HYPERTENSION
  3. BABY ASPIRIN [Concomitant]
  4. CALCIUM WITH VITAMIN D [Concomitant]
     Dosage: 1200 MG
  5. PRAVASTATIN [Concomitant]
  6. LOMOTIL [Concomitant]
     Indication: DIARRHOEA
  7. LOMOTIL [Concomitant]
     Indication: COLITIS
  8. ENALAPRIL [Concomitant]
     Indication: HYPERTENSION
  9. ZYRTEC [Concomitant]
     Indication: NASAL CONGESTION
  10. ESTROGEN [Concomitant]
     Indication: HOT FLUSH

REACTIONS (6)
  - BLOOD MAGNESIUM DECREASED [None]
  - BLOOD POTASSIUM DECREASED [None]
  - BLOOD PRESSURE FLUCTUATION [None]
  - COELIAC DISEASE [None]
  - URINARY TRACT INFECTION [None]
  - VITAMIN D DEFICIENCY [None]
